FAERS Safety Report 4333941-4 (Version None)
Quarter: 2004Q2

REPORT INFORMATION
  Report Type: 
  Country: None (occurrence: None)
  Receive Date: 20040402
  Receipt Date: 20040324
  Transmission Date: 20050107
  Serious: Yes (Hospitalization)
  Sender: FDA-Public Use
  Company Number: 2004-03-0509

PATIENT
  Age: 43 Year
  Sex: Male

DRUGS (3)
  1. TEMODAL [Suspect]
     Indication: DISEASE RECURRENCE
     Dosage: 400 MG QD ORAL
     Route: 048
     Dates: start: 20040212, end: 20040216
  2. TEMODAL [Suspect]
     Indication: GLIOBLASTOMA
     Dosage: 400 MG QD ORAL
     Route: 048
     Dates: start: 20040212, end: 20040216
  3. L-THYROXIN [Concomitant]

REACTIONS (8)
  - ALOPECIA [None]
  - CHILLS [None]
  - GENERAL PHYSICAL HEALTH DETERIORATION [None]
  - LOCAL SWELLING [None]
  - LYMPHADENOPATHY [None]
  - PETECHIAE [None]
  - PLATELET COUNT DECREASED [None]
  - WHITE BLOOD CELL COUNT DECREASED [None]
